FAERS Safety Report 24309704 (Version 1)
Quarter: 2024Q3

REPORT INFORMATION
  Report Type: Report from Study
  Country: US (occurrence: US)
  Receive Date: 20240912
  Receipt Date: 20240912
  Transmission Date: 20241017
  Serious: Yes (Other)
  Sender: ABBVIE
  Company Number: US-ABBVIE-5675583

PATIENT
  Sex: Female
  Weight: 88 kg

DRUGS (9)
  1. RINVOQ [Suspect]
     Active Substance: UPADACITINIB
     Indication: Rheumatoid arthritis
     Dosage: FORM STRENGTH: 15MILLIGRAM
     Route: 048
     Dates: start: 20240213
  2. RINVOQ [Suspect]
     Active Substance: UPADACITINIB
     Indication: Rheumatoid arthritis
     Dosage: FORM STRENGTH: 15MILLIGRAM
     Route: 048
     Dates: start: 202403
  3. RINVOQ [Suspect]
     Active Substance: UPADACITINIB
     Indication: Rheumatoid arthritis
     Route: 048
     Dates: start: 202402
  4. PREGABALIN [Concomitant]
     Active Substance: PREGABALIN
     Indication: Rheumatoid arthritis
  5. CALCIUM [Concomitant]
     Active Substance: CALCIUM
     Indication: Mineral supplementation
  6. CEVIMELINE [Concomitant]
     Active Substance: CEVIMELINE
     Indication: Dry mouth
  7. FOLIC ACID [Concomitant]
     Active Substance: FOLIC ACID
     Indication: Vitamin supplementation
  8. METHOTREXATE [Concomitant]
     Active Substance: METHOTREXATE
     Indication: Rheumatoid arthritis
  9. CITALOPRAM [Concomitant]
     Active Substance: CITALOPRAM
     Indication: Rheumatoid arthritis

REACTIONS (9)
  - Basal cell carcinoma [Unknown]
  - Acne pustular [Not Recovered/Not Resolved]
  - Skin discolouration [Not Recovered/Not Resolved]
  - Oral herpes [Unknown]
  - Dysstasia [Unknown]
  - Pain of skin [Not Recovered/Not Resolved]
  - Gait disturbance [Unknown]
  - Spondylitis [Unknown]
  - Herpes dermatitis [Unknown]

NARRATIVE: CASE EVENT DATE: 20240101
